FAERS Safety Report 7199779-8 (Version None)
Quarter: 2010Q4

REPORT INFORMATION
  Report Type: 
  Country: None (occurrence: None)
  Receive Date: 20101228
  Receipt Date: 20101213
  Transmission Date: 20110411
  Serious: Yes (Hospitalization, Disabling)
  Sender: FDA-Public Use
  Company Number: US-ROCHE-744061

PATIENT
  Sex: Female
  Weight: 64 kg

DRUGS (7)
  1. BONIVA [Suspect]
     Indication: OSTEOPOROSIS
     Dosage: DOSE:3 MG/3ML;FORM:PRE FILLED SYRINGE
     Route: 042
     Dates: start: 20100930, end: 20101005
  2. BONIVA [Suspect]
     Route: 048
     Dates: start: 20080101, end: 20090101
  3. ASPIRIN [Concomitant]
  4. SYNTHROID [Concomitant]
     Route: 048
  5. ELAVIL [Concomitant]
     Route: 048
  6. ZETIA [Concomitant]
     Route: 048
  7. PRILOSEC [Concomitant]
     Dosage: DRUG REPORTED AS PRILOSEC OTC

REACTIONS (6)
  - ABSCESS LIMB [None]
  - CELLULITIS [None]
  - INJECTION SITE PAIN [None]
  - INJECTION SITE SWELLING [None]
  - THROMBOPHLEBITIS SUPERFICIAL [None]
  - VENOUS THROMBOSIS LIMB [None]
